FAERS Safety Report 4599972-4 (Version None)
Quarter: 2005Q1

REPORT INFORMATION
  Report Type: 
  Country: None (occurrence: None)
  Receive Date: 20050303
  Receipt Date: 20050216
  Transmission Date: 20050727
  Serious: Yes (Hospitalization, Other)
  Sender: FDA-Public Use
  Company Number: USA041182892

PATIENT
  Age: 68 Year
  Sex: Female

DRUGS (5)
  1. FORTEO [Suspect]
     Indication: OSTEOPOROSIS
     Dosage: 20 UG DAY
     Dates: start: 20031201, end: 20041201
  2. PROZAC [Concomitant]
  3. SYNTHROID (LEVOTHGYROXINE SODIUM) [Concomitant]
  4. NEURONTIN [Concomitant]
  5. NEXIUM [Concomitant]

REACTIONS (5)
  - DIARRHOEA [None]
  - LIVER FUNCTION TEST ABNORMAL [None]
  - RENAL CYST [None]
  - RENAL IMPAIRMENT [None]
  - RENAL NEOPLASM [None]
